FAERS Safety Report 8571920-1 (Version None)
Quarter: 2012Q3

REPORT INFORMATION
  Report Type: 
  Country: None (occurrence: None)
  Receive Date: 20120724
  Receipt Date: 20120712
  Transmission Date: 20120928
  Serious: Yes (Hospitalization, Other)
  Sender: FDA-Public Use
  Company Number: 2012HGS-003801

PATIENT
  Age: 54 Year
  Sex: Female
  Weight: 63.9 kg

DRUGS (11)
  1. PREMARIN (ESTROGENS CONJUGATED) (ESTROGENS CONJUGATED) [Concomitant]
  2. PLAQUENIL (HYDROXYCHLOROQUINE PHOSPHATE) (HYDROXYCHLOROQUINE PHOSPHATE [Concomitant]
  3. NEXIUM [Concomitant]
  4. NORVASC [Concomitant]
  5. VENTOLIN HFA (SALBUTAMOL SULFATE) (SALBUTAMOL SULFATE) [Concomitant]
  6. PLAVIX (CLOPIDOGREL BISULFATE) (CLOPIDOGREL BISULFATE) [Concomitant]
  7. HYDROCORTISONE CREAM (HYDROCORTISONE) (HYDROCORTISONE) [Concomitant]
  8. BELIMUMAB [Suspect]
     Indication: SYSTEMIC LUPUS ERYTHEMATOSUS
     Dosage: 1 MG/M2, 1 IN 28 D, INTRAVENOUS
     Route: 042
     Dates: start: 20091007
  9. DEXEDRINE (DEXAMFETAMINE SULFATE) (DEXAMFETAMINE SULFATE) [Concomitant]
  10. SENNA-S (COLOXYL WITH SENNA) (SENNOSIDE A+B, DOCUSATE SODIUM) [Concomitant]
  11. IMITREX (SUMATRIPTAN) (SUMATRIPTAN) [Concomitant]

REACTIONS (12)
  - CHEST PAIN [None]
  - DYSPNOEA [None]
  - NAUSEA [None]
  - INFECTION [None]
  - PLEURAL EFFUSION [None]
  - PERICARDITIS LUPUS [None]
  - URINE OUTPUT DECREASED [None]
  - DIZZINESS [None]
  - FEELING HOT [None]
  - HYPERHIDROSIS [None]
  - TREMOR [None]
  - HYPOTENSION [None]
